FAERS Safety Report 11342657 (Version 1)
Quarter: 2015Q3

REPORT INFORMATION
  Report Type: Spontaneous
  Country: CH (occurrence: DE)
  Receive Date: 20150805
  Receipt Date: 20150805
  Transmission Date: 20151125
  Serious: Yes (Other)
  Sender: FDA-Public Use
  Company Number: CH-LPDUSPRD-20150590

PATIENT
  Age: 31 Year
  Sex: Female

DRUGS (4)
  1. SALOFALK [Concomitant]
     Active Substance: MESALAMINE
     Dosage: 1 DOSAGE FORM (1 IN 1 TOTAL)
     Route: 065
  2. 15 ENTYVIO [Concomitant]
     Dosage: 1 DOSE EVERY 8 WKS
     Route: 042
     Dates: start: 20150128
  3. FERINJECT [Suspect]
     Active Substance: FERRIC CARBOXYMALTOSE
     Dosage: 1000MG/250ML UNSPEC SOLUTION
     Route: 041
     Dates: start: 20150129, end: 20150129
  4. BUDENFALK RECTAL [Concomitant]
     Dosage: 1 DOSAGE FORM (1 IN 1 TOTAL)
     Route: 054

REACTIONS (7)
  - Palpitations [Unknown]
  - Flushing [Unknown]
  - Dyspnoea [Unknown]
  - Restlessness [Unknown]
  - Hyperventilation [Unknown]
  - Tachycardia [Unknown]
  - Cough [Unknown]

NARRATIVE: CASE EVENT DATE: 20150129
